FAERS Safety Report 5509342-X (Version None)
Quarter: 2007Q4

REPORT INFORMATION
  Report Type: 
  Country: None (occurrence: None)
  Receive Date: 20071106
  Receipt Date: 20071031
  Transmission Date: 20080405
  Serious: Yes (Hospitalization)
  Sender: FDA-Public Use
  Company Number: WAES 0710USA06941

PATIENT
  Age: 59 Year
  Sex: Female
  Weight: 87.9978 kg

DRUGS (9)
  1. DECADRON [Suspect]
     Dosage: 4 MG/DAILY/PO
     Route: 048
     Dates: start: 20071001
  2. TEMODAR [Suspect]
     Indication: GLIOBLASTOMA MULTIFORME
     Dosage: 75 MG/M[2]/DAILY PO; PO
     Route: 048
     Dates: start: 20070701, end: 20070801
  3. TEMODAR [Suspect]
     Indication: GLIOBLASTOMA MULTIFORME
     Dosage: 75 MG/M[2]/DAILY PO; PO
     Route: 048
     Dates: start: 20070927, end: 20071001
  4. BACTRIM DS [Suspect]
     Dosage: 1 DOSE/3XW/PO
     Route: 048
     Dates: start: 20071001
  5. KEPPRA [Suspect]
     Dosage: 500 MG/BID/PO
     Route: 048
     Dates: start: 20071001
  6. PRILOSEC [Concomitant]
  7. SYNTHROID [Concomitant]
  8. VALTREX [Concomitant]
  9. FLUCONAZOLE [Concomitant]

REACTIONS (5)
  - ASTHENIA [None]
  - CUSHING'S SYNDROME [None]
  - DISEASE PROGRESSION [None]
  - LYMPHOPENIA [None]
  - SYSTEMIC CANDIDA [None]
